FAERS Safety Report 7388493-1 (Version None)
Quarter: 2011Q2

REPORT INFORMATION
  Report Type: 
  Country: None (occurrence: None)
  Receive Date: 20110401
  Receipt Date: 20110325
  Transmission Date: 20111010
  Serious: Yes (Death)
  Sender: FDA-Public Use
  Company Number: US-BRISTOL-MYERS SQUIBB COMPANY-15641988

PATIENT

DRUGS (10)
  1. MESNA [Suspect]
     Dosage: WITH A 12HOUR MESNA TAIL
  2. RITUXIMAB [Suspect]
     Dosage: ON DAYS 13,18,39,42,59,62 AND 89
  3. DOXORUBICIN [Suspect]
  4. PREDNISONE [Suspect]
     Dosage: GIVEN ON DAYS1-5
     Route: 048
  5. CYTARABINE [Suspect]
     Dosage: ON DAYS 3,5,21,45 ALSO IN IV AS 4 DOSES OF 3.2G/M SUP(2) ON 12HRS
     Route: 037
  6. VINCRISTINE [Suspect]
  7. CYCLOPHOSPHAMIDE [Suspect]
     Dosage: DOSAGE ON 200MG/M SUP(2) ON DAYS 2-5
     Route: 042
  8. ETOPOSIDE [Suspect]
  9. IFOSFAMIDE [Suspect]
     Route: 042
  10. FILGRASTIM [Suspect]

REACTIONS (1)
  - STILLBIRTH [None]
